FAERS Safety Report 6637335-8 (Version None)
Quarter: 2010Q1

REPORT INFORMATION
  Report Type: 
  Country: None (occurrence: None)
  Receive Date: 20100311
  Receipt Date: 20100223
  Transmission Date: 20100710
  Serious: Yes (Hospitalization)
  Sender: FDA-Public Use
  Company Number: 006389

PATIENT
  Sex: Female

DRUGS (7)
  1. CERTOLIZUMAB PEGOL (CERTOLIZUMAB PEGOL) [Suspect]
     Indication: RHEUMATOID ARTHRITIS
     Dosage: (200 MG, EVERY TWO WEEKS SUBCUTANEOUS)
     Route: 058
     Dates: start: 20090428
  2. METHOTREXATE [Concomitant]
  3. FOLIC ACID [Concomitant]
  4. CELECOXIB [Concomitant]
  5. RIBOFLAVIN TETRABUTYRATE [Concomitant]
  6. PREDNISOLONE [Concomitant]
  7. REBAMIPIDE [Concomitant]

REACTIONS (7)
  - BODY TEMPERATURE INCREASED [None]
  - BRONCHITIS [None]
  - CHILLS [None]
  - DIARRHOEA [None]
  - NAUSEA [None]
  - TREMOR [None]
  - VIRAL TEST POSITIVE [None]
